FAERS Safety Report 8951614 (Version 2)
Quarter: 2012Q4

REPORT INFORMATION
  Report Type: 
  Country: US (occurrence: US)
  Receive Date: 20121204
  Receipt Date: 20121213
  Transmission Date: 20130627
  Serious: Yes (Death)
  Sender: FDA-Public Use
  Company Number: GXBR2012US002305

PATIENT
  Age: 77 Year
  Sex: Male

DRUGS (1)
  1. LORATADINE [Suspect]
     Indication: RHINORRHOEA
     Dosage: 10 mg, QD
     Route: 048
     Dates: start: 20121101

REACTIONS (3)
  - Death [Fatal]
  - Rhinorrhoea [Not Recovered/Not Resolved]
  - Drug ineffective [Not Recovered/Not Resolved]
